FAERS Safety Report 14630773 (Version 1)
Quarter: 2018Q1

REPORT INFORMATION
  Report Type: Spontaneous
  Country: FR (occurrence: FR)
  Receive Date: 20180313
  Receipt Date: 20180313
  Transmission Date: 20180509
  Serious: Yes (Hospitalization)
  Sender: FDA-Public Use
  Company Number: FR-PFIZER INC-2018102758

PATIENT
  Age: 35 Year
  Sex: Female

DRUGS (3)
  1. CANNABIS [Suspect]
     Active Substance: CANNABIS SATIVA SUBSP. INDICA TOP
     Dosage: UNK
     Route: 065
     Dates: start: 2012
  2. TRIATEC [Suspect]
     Active Substance: RAMIPRIL
     Dosage: 5 MG, UNK
     Route: 048
     Dates: start: 20171212
  3. TOBACCO [Suspect]
     Active Substance: TOBACCO LEAF
     Dosage: UNK
     Route: 055

REACTIONS (3)
  - Drug abuse [Unknown]
  - Cough [Recovering/Resolving]
  - Drug dependence [Unknown]

NARRATIVE: CASE EVENT DATE: 201709
